FAERS Safety Report 5941678-0 (Version None)
Quarter: 2008Q4

REPORT INFORMATION
  Report Type: 
  Country: None (occurrence: None)
  Receive Date: 20081104
  Receipt Date: 20081104
  Transmission Date: 20090506
  Serious: Yes (Hospitalization)
  Sender: FDA-Public Use
  Company Number: None

PATIENT
  Age: 80 Year
  Sex: Male
  Weight: 81.6 kg

DRUGS (1)
  1. ENOXAPARIN SODIUM [Suspect]
     Indication: THROMBOSIS PROPHYLAXIS
     Dosage: 30 MG BID SQ
     Route: 058
     Dates: start: 20081001, end: 20081003

REACTIONS (7)
  - ANAEMIA [None]
  - DUODENITIS [None]
  - GASTRIC HAEMORRHAGE [None]
  - GASTRITIS [None]
  - HYPOTENSION [None]
  - OESOPHAGITIS ULCERATIVE [None]
  - RENAL FAILURE ACUTE [None]
